FAERS Safety Report 11325798 (Version 1)
Quarter: 2015Q3

REPORT INFORMATION
  Report Type: Other
  Country: IT (occurrence: IT)
  Receive Date: 20150731
  Receipt Date: 20150731
  Transmission Date: 20151125
  Serious: Yes (Other)
  Sender: FDA-Public Use
  Company Number: IT-SUN PHARMACEUTICAL INDUSTRIES LTD-2015SUN01465

PATIENT

DRUGS (7)
  1. OXALIPLATIN. [Suspect]
     Active Substance: OXALIPLATIN
     Indication: COLON CANCER
     Dosage: 140 MG CYCLICAL
     Route: 042
     Dates: start: 20150123, end: 20150325
  2. AVASTIN [Suspect]
     Active Substance: BEVACIZUMAB
     Indication: COLON CANCER
     Dosage: 290 MG CYCLICAL
     Route: 042
     Dates: start: 20150123, end: 20150325
  3. 1-(U-D-5^-DEOSSIRIBOFURANOSIL)-5-FLUOROURACILE [Suspect]
     Active Substance: FLUOROURACIL
     Indication: COLON CANCER
     Dosage: 650 MG CYCLICAL
     Route: 040
     Dates: start: 20150123, end: 20150325
  4. MICARDIS [Concomitant]
     Active Substance: TELMISARTAN
  5. LEVOFOLINIC ACID (AS DISODIUM LEVOFOLINATE) [Concomitant]
     Dosage: 320 MG
     Route: 042
     Dates: start: 20150123, end: 20150325
  6. 1-(U-D-5^-DEOSSIRIBOFURANOSIL)-5-FLUOROURACILE [Suspect]
     Active Substance: FLUOROURACIL
     Dosage: 3920 MG CYCLICAL
     Route: 041
     Dates: start: 20150123, end: 20150325
  7. SERETIDE [Concomitant]
     Active Substance: FLUTICASONE FUROATE\SALMETEROL XINAFOATE

REACTIONS (9)
  - Vomiting [Recovering/Resolving]
  - Pyrexia [Recovering/Resolving]
  - Paraesthesia [Recovering/Resolving]
  - Laryngitis [Recovering/Resolving]
  - Neutropenia [Recovering/Resolving]
  - Cough [Recovering/Resolving]
  - Malaise [Recovering/Resolving]
  - Infusion related reaction [Recovering/Resolving]
  - Abdominal pain [Recovering/Resolving]

NARRATIVE: CASE EVENT DATE: 20150201
